FAERS Safety Report 5510132-2 (Version None)
Quarter: 2007Q4

REPORT INFORMATION
  Report Type: 
  Country: None (occurrence: None)
  Receive Date: 20071106
  Receipt Date: 20071001
  Transmission Date: 20080405
  Serious: Yes (Disabling, Other)
  Sender: FDA-Public Use
  Company Number: 2007US002488

PATIENT
  Age: 62 Year
  Sex: Male

DRUGS (11)
  1. AMBISOME [Suspect]
     Indication: ZYGOMYCOSIS
     Dosage: SEE IMAGE
     Route: 042
     Dates: start: 20070814, end: 20070814
  2. AMBISOME [Suspect]
     Indication: ZYGOMYCOSIS
     Dosage: SEE IMAGE
     Route: 042
     Dates: start: 20070815, end: 20070816
  3. AMBISOME [Suspect]
     Indication: ZYGOMYCOSIS
     Dosage: SEE IMAGE
     Route: 042
     Dates: start: 20070817, end: 20070819
  4. AMBISOME [Suspect]
     Indication: ZYGOMYCOSIS
     Dosage: SEE IMAGE
     Route: 042
     Dates: start: 20070820, end: 20070825
  5. AMBISOME [Suspect]
     Indication: ZYGOMYCOSIS
     Dosage: SEE IMAGE
     Route: 042
     Dates: start: 20070826
  6. MORPHINE SULFATE [Concomitant]
  7. ACETAMINOPHEN [Concomitant]
  8. ZOLPIDEM TARTRATE [Concomitant]
  9. DIAMICRON           (GLICLAZIDE) [Concomitant]
  10. HYDROCORTISONE HYDROGEN SUCCINATE    (HYDROCORTISONE HYDROGEN SUCCINAT [Concomitant]
  11. POLARAMINE [Concomitant]

REACTIONS (4)
  - BACK PAIN [None]
  - MOBILITY DECREASED [None]
  - RENAL FAILURE ACUTE [None]
  - RESPIRATORY DEPRESSION [None]
